FAERS Safety Report 7027606-8 (Version None)
Quarter: 2010Q4

REPORT INFORMATION
  Report Type: 
  Country: None (occurrence: None)
  Receive Date: 20101004
  Receipt Date: 20100901
  Transmission Date: 20110411
  Serious: No
  Sender: FDA-Public Use
  Company Number: US-BAYER-201032759NA

PATIENT
  Age: 86 Year
  Sex: Male

DRUGS (6)
  1. LEVITRA [Suspect]
     Indication: ERECTILE DYSFUNCTION
     Route: 048
     Dates: start: 20060101
  2. EPLERENONE [Concomitant]
     Dosage: TOTAL DAILY DOSE: 100 MG  UNIT DOSE: 50 MG
     Route: 048
  3. PROCARDIA [Concomitant]
  4. LISINOPRIL [Concomitant]
  5. HYDROCHLOROTHIAZIDE [Concomitant]
  6. LABETALOL HCL [Concomitant]
     Indication: HYPERTENSION
     Dosage: PRIOR TAKING LEVITRA

REACTIONS (1)
  - HYPOTENSION [None]
